FAERS Safety Report 4956318-7 (Version None)
Quarter: 2006Q1

REPORT INFORMATION
  Report Type: 
  Country: None (occurrence: None)
  Receive Date: 20060323
  Receipt Date: 20060313
  Transmission Date: 20060701
  Serious: No
  Sender: FDA-Public Use
  Company Number: 06H-087-0304930-00

PATIENT
  Age: 15 Year
  Sex: Male
  Weight: 54 kg

DRUGS (5)
  1. MANNITOL [Suspect]
     Indication: REDUCTION OF INCREASED INTRACRANIAL PRESSURE
     Dosage: 300 ML, INTRAVENOUS DRIP
     Route: 041
  2. LACTATE RINGER SOLUTION [Concomitant]
  3. SEVOFLURANE [Concomitant]
  4. FENTANYL CITRATE [Concomitant]
  5. VECURONIUM BROMIDE [Concomitant]

REACTIONS (6)
  - CONDITION AGGRAVATED [None]
  - ELECTROCARDIOGRAM QRS COMPLEX PROLONGED [None]
  - ELECTROCARDIOGRAM T WAVE PEAKED [None]
  - HYPERKALAEMIA [None]
  - HYPONATRAEMIA [None]
  - METABOLIC ACIDOSIS [None]
